FAERS Safety Report 6347037-3 (Version None)
Quarter: 2009Q3

REPORT INFORMATION
  Report Type: 
  Country: None (occurrence: None)
  Receive Date: 20090910
  Receipt Date: 20090810
  Transmission Date: 20100115
  Serious: No
  Sender: FDA-Public Use
  Company Number: US-BAYER-200929445NA

PATIENT
  Sex: Male

DRUGS (1)
  1. CIPRO [Suspect]
     Indication: PROSTATITIS
     Dates: start: 20080901, end: 20081201

REACTIONS (4)
  - DISBACTERIOSIS [None]
  - FUNGAL INFECTION [None]
  - GROIN PAIN [None]
  - MUSCULOSKELETAL DISCOMFORT [None]
